FAERS Safety Report 19918613 (Version 2)
Quarter: 2021Q4

REPORT INFORMATION
  Report Type: Spontaneous
  Country: US (occurrence: US)
  Receive Date: 20211004
  Receipt Date: 20211027
  Transmission Date: 20220303
  Serious: Yes (Hospitalization, Other)
  Sender: FDA-Public Use
  Company Number: US-BOEHRINGERINGELHEIM-2021-BI-130631

PATIENT
  Age: 78 Year
  Sex: Female

DRUGS (1)
  1. COMBIVENT [Suspect]
     Active Substance: ALBUTEROL SULFATE\IPRATROPIUM BROMIDE
     Indication: Chronic obstructive pulmonary disease
     Dosage: ONE PUFF FOUR TIMES PER DAY
     Dates: start: 2018

REACTIONS (3)
  - Myocardial infarction [Unknown]
  - Product use issue [Unknown]
  - Amnesia [Unknown]

NARRATIVE: CASE EVENT DATE: 20210930
